FAERS Safety Report 7405986-9 (Version None)
Quarter: 2011Q2

REPORT INFORMATION
  Report Type: 
  Country: None (occurrence: None)
  Receive Date: 20110411
  Receipt Date: 20110401
  Transmission Date: 20111010
  Serious: Yes (Hospitalization)
  Sender: FDA-Public Use
  Company Number: A0771632A

PATIENT
  Age: 68 Year
  Sex: Male
  Weight: 77.3 kg

DRUGS (13)
  1. TEKTURNA [Concomitant]
  2. AVANDIA [Suspect]
     Indication: DIABETES MELLITUS
     Dosage: 4MG TWICE PER DAY
     Route: 048
     Dates: start: 20000101, end: 20080801
  3. ADVAIR HFA [Concomitant]
  4. GLIPIZIDE [Concomitant]
  5. PROMETHAZINE HCL AND CODEINE [Concomitant]
  6. ZYRTEC [Concomitant]
  7. CETIRIZINE HCL [Concomitant]
  8. COMBIVENT [Concomitant]
  9. ZOCOR [Concomitant]
  10. AMBIEN [Concomitant]
  11. POTASSIUM CHLORIDE [Concomitant]
  12. PLAVIX [Concomitant]
  13. METFORMIN HCL [Concomitant]

REACTIONS (5)
  - BUNDLE BRANCH BLOCK BILATERAL [None]
  - CARDIAC FAILURE CONGESTIVE [None]
  - CEREBROVASCULAR ACCIDENT [None]
  - CARDIAC DISORDER [None]
  - ISCHAEMIC CARDIOMYOPATHY [None]
